FAERS Safety Report 9739159 (Version 2)
Quarter: 2014Q1

REPORT INFORMATION
  Report Type: Report from Study
  Country: FR (occurrence: FR)
  Receive Date: 20131209
  Receipt Date: 20140221
  Transmission Date: 20141002
  Serious: Yes (Death, Hospitalization)
  Sender: FDA-Public Use
  Company Number: FR-ASTELLAS-2013US012730

PATIENT
  Age: 72 Year
  Sex: Male

DRUGS (3)
  1. ERLOTINIB TABLET [Suspect]
     Indication: PANCREATIC CARCINOMA METASTATIC
     Dosage: 50 MG, UID/QD
     Route: 048
     Dates: start: 20121119
  2. TRASTUZUMAB [Suspect]
     Indication: PANCREATIC CARCINOMA
     Dosage: 130 MG, UID/QD
     Route: 042
     Dates: start: 20121119
  3. GEMCITABINE [Suspect]
     Indication: PANCREATIC CARCINOMA METASTATIC
     Dosage: UNK MG, TOTAL DOSE
     Route: 042
     Dates: start: 20121119

REACTIONS (2)
  - Incorrect dose administered [Unknown]
  - Small intestinal obstruction [Fatal]
